FAERS Safety Report 14790476 (Version 1)
Quarter: 2018Q2

REPORT INFORMATION
  Report Type: Spontaneous
  Country: US (occurrence: US)
  Receive Date: 20180413
  Receipt Date: 20180413
  Transmission Date: 20180711
  Serious: Yes (Other)
  Sender: FDA-Public Use
  Company Number: None

PATIENT
  Age: 48 Year
  Sex: Female
  Weight: 88.2 kg

DRUGS (6)
  1. TRAMADOL HCL 50 MG [Suspect]
     Active Substance: TRAMADOL HYDROCHLORIDE
     Indication: PAIN
     Dosage: ?          QUANTITY:2 TABLET(S);?
     Route: 048
     Dates: start: 20160201, end: 20180209
  2. MORPHINE [Concomitant]
     Active Substance: MORPHINE
  3. HYDROCHLOROTHIAZIDE. [Concomitant]
     Active Substance: HYDROCHLOROTHIAZIDE
  4. TYLANOL [Concomitant]
  5. MOTRIN [Concomitant]
     Active Substance: IBUPROFEN
  6. LISINOPRIL. [Concomitant]
     Active Substance: LISINOPRIL

REACTIONS (2)
  - Dental caries [None]
  - Tooth fracture [None]

NARRATIVE: CASE EVENT DATE: 20170330
